FAERS Safety Report 24018557 (Version 1)
Quarter: 2024Q2

REPORT INFORMATION
  Report Type: Spontaneous
  Country: AR (occurrence: AR)
  Receive Date: 20240627
  Receipt Date: 20240627
  Transmission Date: 20240716
  Serious: Yes (Other)
  Sender: FDA-Public Use
  Company Number: AR-AMGEN-ARGSP2024121572

PATIENT
  Age: 17 Year
  Sex: Female
  Weight: 49 kg

DRUGS (4)
  1. BLINCYTO [Suspect]
     Active Substance: BLINATUMOMAB
     Indication: Minimal residual disease
     Dosage: 28 MICROGRAM, QD
     Route: 065
     Dates: start: 20211214, end: 202112
  2. BLINCYTO [Suspect]
     Active Substance: BLINATUMOMAB
     Indication: Philadelphia chromosome negative
     Dosage: 9 MICROGRAM, QD
     Route: 065
     Dates: start: 20211223, end: 202112
  3. BLINCYTO [Suspect]
     Active Substance: BLINATUMOMAB
     Indication: Acute lymphocytic leukaemia
     Dosage: 28 MICROGRAM, QD
     Route: 065
     Dates: start: 20211230
  4. BLINCYTO [Suspect]
     Active Substance: BLINATUMOMAB
     Dosage: UNK
     Route: 065
     Dates: start: 20240207

REACTIONS (17)
  - Hepatic failure [Unknown]
  - Acute kidney injury [Unknown]
  - Herpes simplex oesophagitis [Unknown]
  - Herpes simplex gastritis [Unknown]
  - Herpes simplex viraemia [Unknown]
  - Respiratory distress [Unknown]
  - Confusional state [Recovered/Resolved]
  - Aphasia [Recovered/Resolved]
  - Diarrhoea [Unknown]
  - Pyrexia [Unknown]
  - Tremor [Unknown]
  - Hiccups [Unknown]
  - Venous occlusion [Unknown]
  - Generalised oedema [Unknown]
  - Haemorrhage [Unknown]
  - Infection [Unknown]
  - Ill-defined disorder [Unknown]

NARRATIVE: CASE EVENT DATE: 20211216
